FAERS Safety Report 9263529 (Version 1)
Quarter: 2013Q2

REPORT INFORMATION
  Report Type: Spontaneous
  Country: US (occurrence: US)
  Receive Date: 20130430
  Receipt Date: 20130430
  Transmission Date: 20140414
  Serious: Yes (Other)
  Sender: FDA-Public Use
  Company Number: US-BAYER-2013-052297

PATIENT
  Age: 31 Year
  Sex: Female
  Weight: 83.9 kg

DRUGS (6)
  1. GIANVI [Suspect]
  2. YAZ [Suspect]
  3. AUGMENTIN [Concomitant]
     Indication: BRONCHITIS
     Dosage: 875 MG, UNK
     Route: 048
     Dates: start: 20110204
  4. PROMETHAZINE [Concomitant]
     Dosage: UNK
     Route: 048
     Dates: start: 20110204
  5. PROVENTIL [Concomitant]
     Dosage: UNK
     Dates: start: 20110204
  6. NORCO [Concomitant]
     Dosage: 5-325 MG
     Route: 048
     Dates: start: 20110413

REACTIONS (1)
  - Deep vein thrombosis [None]
